FAERS Safety Report 17097629 (Version 1)
Quarter: 2019Q4

REPORT INFORMATION
  Report Type: Spontaneous
  Country: US (occurrence: US)
  Receive Date: 20191105
  Receipt Date: 20191105
  Transmission Date: 20200122
  Serious: Yes (Hospitalization)
  Sender: FDA-Public Use
  Company Number: None

PATIENT
  Age: 28 Year
  Sex: Female
  Weight: 49 kg

DRUGS (12)
  1. PROAIR HFA [Concomitant]
     Active Substance: ALBUTEROL SULFATE
  2. MESALAMINE (LIALDA) [Concomitant]
  3. MONO-LINYAH [Concomitant]
     Active Substance: ETHINYL ESTRADIOL\NORGESTIMATE
  4. DICYCLOMINE (BENTYL) [Concomitant]
  5. SINGULAIR [Concomitant]
     Active Substance: MONTELUKAST SODIUM
  6. CHOLECALCIFEROL, VITAMIN D3 [Concomitant]
  7. TYLENOL [Concomitant]
     Active Substance: ACETAMINOPHEN
  8. ADVAIR DISKUS [Concomitant]
     Active Substance: FLUTICASONE PROPIONATE\SALMETEROL XINAFOATE
  9. HYOSCYAMINE (LEVSIN SL) [Concomitant]
  10. STELARA [Suspect]
     Active Substance: USTEKINUMAB
  11. CHLORDIAZEPOXIDE-CLIDINIUM (LIBRAX (WITH CLIDINIUM)) [Concomitant]
  12. TRAZODONE (DESYREL) [Concomitant]

REACTIONS (6)
  - Vomiting [None]
  - Fatigue [None]
  - Diarrhoea [None]
  - Abdominal pain [None]
  - Nausea [None]
  - Faecaloma [None]

NARRATIVE: CASE EVENT DATE: 20190909
